FAERS Safety Report 4689116-2 (Version None)
Quarter: 2005Q2

REPORT INFORMATION
  Report Type: 
  Country: None (occurrence: None)
  Receive Date: 20050613
  Receipt Date: 20050601
  Transmission Date: 20051028
  Serious: Yes (Other)
  Sender: FDA-Public Use
  Company Number: 2005AP03205

PATIENT
  Age: 36 Year
  Sex: Female

DRUGS (1)
  1. CARBOCAIN [Suspect]

REACTIONS (4)
  - ASTHMA [None]
  - DRUG ADMINISTRATION ERROR [None]
  - OEDEMA [None]
  - TYPE IV HYPERSENSITIVITY REACTION [None]
